FAERS Safety Report 5315959-8 (Version None)
Quarter: 2007Q2

REPORT INFORMATION
  Report Type: 
  Country: None (occurrence: None)
  Receive Date: 20070503
  Receipt Date: 20070419
  Transmission Date: 20071010
  Serious: Yes (Other)
  Sender: FDA-Public Use
  Company Number: JP-ROCHE-439113

PATIENT
  Age: 12 Year
  Sex: Male
  Weight: 35 kg

DRUGS (4)
  1. TAMIFLU [Suspect]
     Route: 048
     Dates: start: 20060226, end: 20060226
  2. ACETAMINOPHEN [Concomitant]
     Route: 048
     Dates: start: 20060226, end: 20060301
  3. MEDICON [Concomitant]
     Route: 048
     Dates: start: 20060226, end: 20060301
  4. HUSTAGIN [Concomitant]
     Route: 048
     Dates: start: 20060226, end: 20060301

REACTIONS (1)
  - ABNORMAL BEHAVIOUR [None]
